FAERS Safety Report 6923286-8 (Version None)
Quarter: 2010Q3

REPORT INFORMATION
  Report Type: 
  Country: None (occurrence: None)
  Receive Date: 20100813
  Receipt Date: 20100804
  Transmission Date: 20110219
  Serious: Yes (Death, Other)
  Sender: FDA-Public Use
  Company Number: JP-BRISTOL-MYERS SQUIBB COMPANY-13460126

PATIENT
  Age: 52 Year
  Sex: Male

DRUGS (3)
  1. TAXOL [Suspect]
     Indication: GASTRIC CANCER
  2. RANDA [Suspect]
     Indication: GASTRIC CANCER
     Route: 042
  3. TS-1 [Suspect]
     Indication: GASTRIC CANCER

REACTIONS (6)
  - ASCITES [None]
  - CELLULITIS [None]
  - DISSEMINATED INTRAVASCULAR COAGULATION [None]
  - MALIGNANT NEOPLASM PROGRESSION [None]
  - PSEUDOMONAS INFECTION [None]
  - SKIN NECROSIS [None]
